FAERS Safety Report 19866236 (Version 1)
Quarter: 2021Q3

REPORT INFORMATION
  Report Type: Spontaneous
  Country: IT (occurrence: IT)
  Receive Date: 20210922
  Receipt Date: 20210922
  Transmission Date: 20211014
  Serious: Yes (Hospitalization, Other)
  Sender: FDA-Public Use
  Company Number: IT-SUN PHARMACEUTICAL INDUSTRIES LTD-2021R1-311729

PATIENT
  Age: 78 Year
  Sex: Male

DRUGS (2)
  1. ASPIRIN. [Suspect]
     Active Substance: ASPIRIN
     Indication: PROPHYLAXIS
  2. ASPIRIN. [Suspect]
     Active Substance: ASPIRIN
     Indication: CARDIOVASCULAR DISORDER
     Dosage: 100 MILLIGRAM, UNK
     Route: 065

REACTIONS (5)
  - Cranial nerve paralysis [Unknown]
  - Dysarthria [Unknown]
  - Protrusion tongue [Unknown]
  - Cerebral haemorrhage [Unknown]
  - Therapy partial responder [Unknown]
